FAERS Safety Report 7164680-2 (Version None)
Quarter: 2010Q4

REPORT INFORMATION
  Report Type: 
  Country: None (occurrence: None)
  Receive Date: 20101215
  Receipt Date: 20101209
  Transmission Date: 20110411
  Serious: Yes (Disabling, Other)
  Sender: FDA-Public Use
  Company Number: US-PFIZER INC-2010168656

PATIENT
  Sex: Female
  Weight: 80.272 kg

DRUGS (5)
  1. CHANTIX [Suspect]
     Indication: SMOKING CESSATION THERAPY
     Dosage: UNK
     Route: 048
     Dates: start: 20101101, end: 20101101
  2. CYMBALTA [Concomitant]
     Indication: DEPRESSION
     Dosage: 100 MG, 1X/DAY
     Route: 048
  3. TOPIRAMATE [Concomitant]
     Indication: DEPRESSION
     Dosage: 50 MG, 2X/DAY
  4. WELLBUTRIN [Concomitant]
     Indication: DEPRESSION
     Dosage: 150 MG, 2X/DAY
  5. CLONAZEPAM [Concomitant]
     Indication: DEPRESSION
     Dosage: 1 MG, AS NEEDED
     Route: 048

REACTIONS (4)
  - ABNORMAL BEHAVIOUR [None]
  - MENTAL IMPAIRMENT [None]
  - OEDEMA [None]
  - VISUAL IMPAIRMENT [None]
